FAERS Safety Report 9932271 (Version 2)
Quarter: 2014Q1

REPORT INFORMATION
  Report Type: Spontaneous
  Country: US (occurrence: US)
  Receive Date: 20140228
  Receipt Date: 20140228
  Transmission Date: 20141002
  Serious: Yes (Other)
  Sender: FDA-Public Use
  Company Number: US-ABBVIE-13P-163-1168779-00

PATIENT
  Sex: Male
  Weight: 104.42 kg

DRUGS (8)
  1. ANDROGEL 1% [Suspect]
     Indication: BLOOD TESTOSTERONE DECREASED
     Dosage: STOP DATE: UNKNOWN
     Dates: start: 2009, end: 2009
  2. ANDROGEL 1% [Suspect]
     Dates: start: 2009, end: 2010
  3. ANDROGEL 1% [Suspect]
     Dosage: 12 PUMPS/DAY
     Dates: start: 2010, end: 2011
  4. ANDROGEL [Suspect]
     Indication: BLOOD TESTOSTERONE DECREASED
     Route: 061
     Dates: start: 201307, end: 201310
  5. ANDROGEL [Suspect]
     Dates: start: 201310
  6. LANTUS [Concomitant]
     Indication: DIABETES MELLITUS
  7. JANUVIA [Concomitant]
     Indication: DIABETES MELLITUS
  8. GLIMEPIRIDE [Concomitant]
     Indication: DIABETES MELLITUS

REACTIONS (3)
  - Prostate cancer [Unknown]
  - Prostatic specific antigen increased [Recovered/Resolved]
  - Blood testosterone decreased [Unknown]
